FAERS Safety Report 5963772-0 (Version None)
Quarter: 2008Q4

REPORT INFORMATION
  Report Type: 
  Country: None (occurrence: None)
  Receive Date: 20081121
  Receipt Date: 20081121
  Transmission Date: 20090506
  Serious: No
  Sender: FDA-Public Use
  Company Number: None

PATIENT
  Age: 54 Year
  Sex: Male
  Weight: 90.7194 kg

DRUGS (1)
  1. LAMOTRIGINE [Suspect]
     Dosage: 100 MG BID OTHER
     Route: 050

REACTIONS (1)
  - RASH [None]
